FAERS Safety Report 8499329-X (Version None)
Quarter: 2012Q3

REPORT INFORMATION
  Report Type: 
  Country: None (occurrence: None)
  Receive Date: 20120710
  Receipt Date: 20120706
  Transmission Date: 20120928
  Serious: Yes (Other)
  Sender: FDA-Public Use
  Company Number: PHEH2010US02437

PATIENT
  Sex: Female

DRUGS (19)
  1. TAXOTERE [Suspect]
     Dosage: 58 MG, QW
  2. PROCRIT [Concomitant]
  3. DECADRON [Concomitant]
  4. ZOFRAN [Concomitant]
  5. HERCEPTIN [Suspect]
     Dosage: 162 MG, QW
     Dates: end: 20070611
  6. COREG [Concomitant]
  7. ARANESP [Concomitant]
  8. FEMARA [Concomitant]
     Dosage: 2.5 MG, QD
     Route: 048
  9. FASLODEX [Concomitant]
  10. KLOR-CON [Concomitant]
  11. TORSEMIDE [Concomitant]
  12. ZOMETA [Suspect]
     Indication: HYPERCALCAEMIA OF MALIGNANCY
     Dosage: 4 MG, QMO
     Route: 042
     Dates: start: 20031201, end: 20070201
  13. ZOMETA [Suspect]
     Indication: BREAST CANCER
  14. ZOMETA [Suspect]
     Indication: METASTASES TO BONE
  15. LISINOPRIL [Concomitant]
  16. CLEOCIN HYDROCHLORIDE [Concomitant]
  17. VICODIN [Concomitant]
  18. ADRIAMYCIN PFS [Concomitant]
  19. CARBOPLATIN [Concomitant]

REACTIONS (53)
  - PAIN [None]
  - EXPOSED BONE IN JAW [None]
  - BONE LOSS [None]
  - BRONCHOPLEURAL FISTULA [None]
  - EJECTION FRACTION DECREASED [None]
  - PLEURAL EFFUSION [None]
  - HYPOXIA [None]
  - ASPHYXIA [None]
  - HAEMANGIOMA OF LIVER [None]
  - RASH [None]
  - HEPATIC CYST [None]
  - JAW DISORDER [None]
  - PARAESTHESIA [None]
  - FLUID RETENTION [None]
  - HYDROPNEUMOTHORAX [None]
  - PNEUMONIA [None]
  - METASTASES TO LUNG [None]
  - DECREASED INTEREST [None]
  - TOOTH LOSS [None]
  - INJURY [None]
  - OSTEOMYELITIS [None]
  - DYSPNOEA [None]
  - METASTASES TO LIVER [None]
  - NAIL DISORDER [None]
  - PRURITUS [None]
  - WEIGHT DECREASED [None]
  - OSTEONECROSIS OF JAW [None]
  - FISTULA [None]
  - ERYTHEMA [None]
  - CHEST PAIN [None]
  - HYPOKALAEMIA [None]
  - PRIMARY SEQUESTRUM [None]
  - TOOTH INFECTION [None]
  - ECCHYMOSIS [None]
  - THROMBOCYTOPENIA [None]
  - SENSATION OF HEAVINESS [None]
  - DEPRESSION [None]
  - DIARRHOEA [None]
  - LYMPHOEDEMA [None]
  - TOOTH FRACTURE [None]
  - PATHOLOGICAL FRACTURE [None]
  - NEUROPATHY PERIPHERAL [None]
  - CARDIAC DISORDER [None]
  - CELLULITIS [None]
  - SINUS TACHYCARDIA [None]
  - ABDOMINAL PAIN [None]
  - PERICARDIAL EFFUSION [None]
  - IMPAIRED HEALING [None]
  - DENTAL CARIES [None]
  - EMPHYSEMA [None]
  - ATELECTASIS [None]
  - ANAEMIA [None]
  - ONYCHOCLASIS [None]
